FAERS Safety Report 7178312-0 (Version None)
Quarter: 2010Q4

REPORT INFORMATION
  Report Type: 
  Country: None (occurrence: None)
  Receive Date: 20101220
  Receipt Date: 20101215
  Transmission Date: 20110411
  Serious: Yes (Hospitalization)
  Sender: FDA-Public Use
  Company Number: GB-AMGEN-GBRCT2010009397

PATIENT

DRUGS (14)
  1. PANITUMUMAB [Suspect]
     Indication: GASTRIC CANCER
     Dosage: UNK
     Dates: start: 20100714
  2. EPIRUBICIN [Suspect]
     Indication: GASTRIC CANCER
     Dosage: UNK
     Dates: start: 20100714
  3. OXALIPLATIN [Suspect]
     Indication: GASTRIC CANCER
     Dosage: UNK
     Dates: start: 20100714
  4. XELODA [Suspect]
     Indication: GASTRIC CANCER
     Dosage: UNK
     Dates: start: 20100714
  5. ASPIRIN [Concomitant]
     Dosage: 75 MG, QD
     Dates: start: 20050101
  6. ATORVASTAN [Concomitant]
     Dosage: 20 MG, QD
     Dates: start: 20050101
  7. FELODIPINE [Concomitant]
     Dosage: 5 MG, QD
     Dates: start: 19950101
  8. LANSOPRAZOLE [Concomitant]
     Dosage: 30 MG, QD
     Dates: start: 20080101
  9. TENORETIC 100 [Concomitant]
     Dosage: 50 UNK, UNK
     Dates: start: 19950101
  10. CODEINE PHOSPHATE [Concomitant]
     Dosage: 60 MG, QID
     Dates: start: 20100629
  11. PARACETAMOL [Concomitant]
     Dosage: 1 G, QID
     Dates: start: 20100707
  12. METOCLOPRAMIDE [Concomitant]
     Dosage: 10 MG, TID
     Dates: start: 20100629
  13. LACTULOSE [Concomitant]
     Dosage: 5 ML, BID
     Dates: start: 20100629
  14. SENNA                              /00142201/ [Concomitant]
     Dosage: UNK
     Dates: start: 20100707

REACTIONS (2)
  - ANAEMIA [None]
  - DYSPNOEA [None]
